FAERS Safety Report 4496405-3 (Version None)
Quarter: 2004Q4

REPORT INFORMATION
  Report Type: 
  Country: None (occurrence: None)
  Receive Date: 20041104
  Receipt Date: 20041022
  Transmission Date: 20050328
  Serious: Yes (Other)
  Sender: FDA-Public Use
  Company Number: 2004235825US

PATIENT
  Age: 53 Year
  Sex: Male
  Weight: 104.3 kg

DRUGS (3)
  1. BEXTRA [Suspect]
     Indication: ARTHRALGIA
     Dosage: 20 MG, BID
     Dates: start: 20040920, end: 20040926
  2. TOPROL-XL [Concomitant]
  3. ACETYLSALICYLIC ACID [Concomitant]

REACTIONS (7)
  - DERMATITIS EXFOLIATIVE [None]
  - IMPAIRED WORK ABILITY [None]
  - MALAISE [None]
  - PARAESTHESIA [None]
  - PYREXIA [None]
  - RASH GENERALISED [None]
  - RASH PRURITIC [None]
